FAERS Safety Report 6154511-1 (Version None)
Quarter: 2009Q2

REPORT INFORMATION
  Report Type: 
  Country: None (occurrence: None)
  Receive Date: 20090414
  Receipt Date: 20090407
  Transmission Date: 20091009
  Serious: Yes (Death, Other)
  Sender: FDA-Public Use
  Company Number: DK-ROXANE LABORATORIES, INC.-2009-RO-00355RO

PATIENT
  Age: 36 Year
  Sex: Male

DRUGS (5)
  1. CITALOPRAM HYDROBROMIDE [Suspect]
     Indication: DEPRESSION
  2. CODEINE [Suspect]
  3. KODIMAGNYL [Suspect]
  4. ACETYLSALICYLIC ACID SRT [Suspect]
  5. ETHANOL [Suspect]

REACTIONS (3)
  - COMPLETED SUICIDE [None]
  - DRUG LEVEL INCREASED [None]
  - DRUG TOXICITY [None]
